FAERS Safety Report 21635926 (Version 2)
Quarter: 2023Q1

REPORT INFORMATION
  Report Type: Spontaneous
  Country: DE (occurrence: DE)
  Receive Date: 20221123
  Receipt Date: 20230124
  Transmission Date: 20230417
  Serious: Yes (Death)
  Sender: FDA-Public Use
  Company Number: DE-BIOGEN-2022BI01170857

PATIENT
  Age: 58 Year
  Sex: Male

DRUGS (1)
  1. TYSABRI [Suspect]
     Active Substance: NATALIZUMAB
     Indication: Product used for unknown indication
     Route: 050
     Dates: start: 20090721, end: 20150722

REACTIONS (2)
  - Pulmonary embolism [Fatal]
  - Venous thrombosis limb [Fatal]

NARRATIVE: CASE EVENT DATE: 20220616
